FAERS Safety Report 8578994-2 (Version None)
Quarter: 2012Q3

REPORT INFORMATION
  Report Type: 
  Country: None (occurrence: None)
  Receive Date: 20120808
  Receipt Date: 20120803
  Transmission Date: 20120928
  Serious: Yes (Other)
  Sender: FDA-Public Use
  Company Number: US-PFIZER INC-2012189466

PATIENT
  Sex: Male

DRUGS (1)
  1. LYRICA [Suspect]
     Indication: CONVULSION
     Dosage: 75 MG, 1X/DAY
     Route: 048

REACTIONS (11)
  - MIDDLE INSOMNIA [None]
  - DRUG INEFFECTIVE [None]
  - VISION BLURRED [None]
  - WEIGHT INCREASED [None]
  - MENTAL IMPAIRMENT [None]
  - TREMOR [None]
  - NERVOUSNESS [None]
  - DRUG DOSE OMISSION [None]
  - NIGHTMARE [None]
  - TINNITUS [None]
  - DISTURBANCE IN ATTENTION [None]
